FAERS Safety Report 12080961 (Version 1)
Quarter: 2016Q1

REPORT INFORMATION
  Report Type: Spontaneous
  Country: US (occurrence: US)
  Receive Date: 20160216
  Receipt Date: 20160216
  Transmission Date: 20160526
  Serious: Yes (Other)
  Sender: FDA-Public Use
  Company Number: US-SUPERNUS PHARMACEUTICALS, INC.-2016SUP00015

PATIENT
  Age: 39 Year
  Sex: Female
  Weight: 71.2 kg

DRUGS (3)
  1. TROKENDI XR [Suspect]
     Active Substance: TOPIRAMATE
     Indication: SEIZURE
     Dosage: 25 MG, 1X/DAY
     Route: 048
     Dates: end: 201601
  2. TROKENDI XR [Suspect]
     Active Substance: TOPIRAMATE
     Indication: MIGRAINE
  3. SYNTHROID [Concomitant]
     Active Substance: LEVOTHYROXINE SODIUM
     Dosage: 0.50 ?G, 1X/DAY

REACTIONS (5)
  - Dyspnoea [Recovered/Resolved]
  - Off label use [Recovered/Resolved]
  - Muscle tightness [Unknown]
  - Myalgia [Not Recovered/Not Resolved]
  - Migraine [Not Recovered/Not Resolved]

NARRATIVE: CASE EVENT DATE: 20160201
